FAERS Safety Report 21163528 (Version 2)
Quarter: 2022Q3

REPORT INFORMATION
  Report Type: Spontaneous
  Country: JP (occurrence: JP)
  Receive Date: 20220802
  Receipt Date: 20220810
  Transmission Date: 20221027
  Serious: Yes (Death, Other)
  Sender: FDA-Public Use
  Company Number: JP-TEVA-2022-JP-2060038

PATIENT
  Age: 38 Year
  Sex: Female

DRUGS (2)
  1. CILOSTAZOL [Suspect]
     Active Substance: CILOSTAZOL
     Indication: Moyamoya disease
     Dosage: 200 MILLIGRAM DAILY;
     Route: 065
  2. CLOPIDOGREL [Suspect]
     Active Substance: CLOPIDOGREL BISULFATE
     Indication: Moyamoya disease
     Dosage: 75 MILLIGRAM DAILY;
     Route: 065

REACTIONS (5)
  - Cerebral haemorrhage [Fatal]
  - Palpitations [Unknown]
  - Dizziness [Unknown]
  - Coma [Unknown]
  - Respiratory arrest [Unknown]
